APPROVED DRUG PRODUCT: INVERSINE
Active Ingredient: MECAMYLAMINE HYDROCHLORIDE
Strength: 2.5MG **Federal Register determination that product was not discontinued or withdrawn for safety or effectiveness reasons**
Dosage Form/Route: TABLET;ORAL
Application: N010251 | Product #001
Applicant: TARGACEPT INC
Approved: Approved Prior to Jan 1, 1982 | RLD: Yes | RS: No | Type: DISCN